FAERS Safety Report 19652432 (Version 1)
Quarter: 2021Q3

REPORT INFORMATION
  Report Type: Spontaneous
  Country: DE (occurrence: DE)
  Receive Date: 20210803
  Receipt Date: 20210803
  Transmission Date: 20211014
  Serious: Yes (Hospitalization)
  Sender: FDA-Public Use
  Company Number: DE-DSJP-DSE-2021-123760

PATIENT
  Age: 65 Year

DRUGS (4)
  1. HEPARIN [Suspect]
     Active Substance: HEPARIN SODIUM
     Indication: PRODUCT USED FOR UNKNOWN INDICATION
     Dosage: UNK
  2. LIXIANA [Suspect]
     Active Substance: EDOXABAN TOSYLATE
     Dosage: 60 UNK
  3. LIXIANA [Suspect]
     Active Substance: EDOXABAN TOSYLATE
     Indication: MYOCARDIAL INFARCTION
     Dosage: 60 MG
     Dates: start: 2019
  4. CLEXANE [Concomitant]
     Active Substance: ENOXAPARIN SODIUM
     Indication: PRODUCT USED FOR UNKNOWN INDICATION
     Dosage: UNK

REACTIONS (2)
  - Foot operation [Unknown]
  - Contraindicated product prescribed [Unknown]
